FAERS Safety Report 6071326-3 (Version None)
Quarter: 2009Q1

REPORT INFORMATION
  Report Type: 
  Country: None (occurrence: None)
  Receive Date: 20090205
  Receipt Date: 20090126
  Transmission Date: 20090719
  Serious: Yes (Other)
  Sender: FDA-Public Use
  Company Number: 234797J08USA

PATIENT
  Age: 52 Year
  Sex: Female

DRUGS (2)
  1. REBIF [Suspect]
     Indication: MULTIPLE SCLEROSIS
     Dates: end: 20071201
  2. UNSPECIFIED MEDICATION(ALL OTHER THERAPEUTIC PRODUCTS) [Concomitant]

REACTIONS (6)
  - INFECTION PARASITIC [None]
  - LACTATION DISORDER [None]
  - PITUITARY TUMOUR [None]
  - THYROID CYST [None]
  - THYROID NEOPLASM [None]
  - WEIGHT DECREASED [None]
